FAERS Safety Report 9501855 (Version 1)
Quarter: 2013Q3

REPORT INFORMATION
  Report Type: Spontaneous
  Country: GB (occurrence: GB)
  Receive Date: 20130905
  Receipt Date: 20130905
  Transmission Date: 20140515
  Serious: Yes (Hospitalization, Other)
  Sender: FDA-Public Use
  Company Number: GB-TEVA-429721ISR

PATIENT
  Age: 82 Year
  Sex: Female
  Weight: 65 kg

DRUGS (9)
  1. WARFARIN [Suspect]
  2. ZOLEDRONIC ACID [Interacting]
     Indication: OSTEOPOROTIC FRACTURE
     Route: 042
     Dates: start: 20130305, end: 20130305
  3. CO-CODAMOL [Concomitant]
     Dosage: 8/500MG
     Dates: start: 20130315
  4. FELODIPINE [Concomitant]
     Dosage: 5 MILLIGRAM DAILY;
  5. LEVOTHYROXINE [Concomitant]
     Dosage: 75 MICROGRAM DAILY;
  6. VALSARTAN [Concomitant]
     Dosage: 80 MILLIGRAM DAILY;
  7. TOLTERODINE [Concomitant]
     Dosage: 4 MILLIGRAM DAILY;
  8. CALCICHEW D3 [Concomitant]
     Dosage: 2 DOSAGE FORMS DAILY;
  9. BRINZOLAMIDE [Concomitant]
     Dosage: 1 GTT DAILY; ONE DF BOTH EYES ONCE DAILY.
     Route: 047

REACTIONS (5)
  - Joint swelling [Recovered/Resolved]
  - International normalised ratio increased [Recovered/Resolved]
  - Asthenia [Unknown]
  - Mobility decreased [Unknown]
  - Drug interaction [Unknown]
